FAERS Safety Report 8152589-7 (Version None)
Quarter: 2012Q1

REPORT INFORMATION
  Report Type: 
  Country: None (occurrence: None)
  Receive Date: 20120103
  Receipt Date: 20110925
  Transmission Date: 20120608
  Serious: No
  Sender: FDA-Public Use
  Company Number: AE-2011-001797

PATIENT
  Age: 55 Year
  Sex: Female
  Weight: 121.564 kg

DRUGS (3)
  1. PEGASYS [Concomitant]
  2. INCIVEK [Suspect]
     Dosage: 2250 MG (750 MG,1 IN 8 HR),ORAL
     Route: 048
     Dates: start: 20110916
  3. RIBAVIRIN [Concomitant]

REACTIONS (13)
  - FEELING HOT [None]
  - HOT FLUSH [None]
  - PAROSMIA [None]
  - DEPRESSED MOOD [None]
  - ANAL HAEMORRHAGE [None]
  - RASH PRURITIC [None]
  - MALAISE [None]
  - PAIN [None]
  - DIARRHOEA [None]
  - HAEMORRHOIDS [None]
  - CRYING [None]
  - INSOMNIA [None]
  - ANORECTAL DISCOMFORT [None]
